FAERS Safety Report 7631425-9 (Version None)
Quarter: 2011Q3

REPORT INFORMATION
  Report Type: 
  Country: None (occurrence: None)
  Receive Date: 20110725
  Receipt Date: 20110712
  Transmission Date: 20111222
  Serious: Yes (Hospitalization)
  Sender: FDA-Public Use
  Company Number: US-ELI_LILLY_AND_COMPANY-US201107004608

PATIENT
  Sex: Female

DRUGS (3)
  1. ZYPREXA [Suspect]
     Indication: ANXIETY
     Route: 048
  2. ZYPREXA [Suspect]
     Indication: ANXIETY
     Dosage: 10 ML, EACH MORNING
  3. ZYPREXA [Suspect]
     Dosage: 10 ML, EACH EVENING
     Route: 030

REACTIONS (3)
  - DRUG DOSE OMISSION [None]
  - HOSPITALISATION [None]
  - OFF LABEL USE [None]
